FAERS Safety Report 6223162-2 (Version None)
Quarter: 2009Q2

REPORT INFORMATION
  Report Type: 
  Country: None (occurrence: None)
  Receive Date: 20090611
  Receipt Date: 20090604
  Transmission Date: 20091009
  Serious: Yes (Death, Hospitalization)
  Sender: FDA-Public Use
  Company Number: PHHY2008MX26475

PATIENT
  Age: 58 Year
  Sex: Female

DRUGS (1)
  1. TEGRETOL [Suspect]
     Indication: EPILEPSY
     Dosage: 4.5 TABLETS
     Route: 048
     Dates: start: 20070301

REACTIONS (2)
  - ABDOMINAL PAIN UPPER [None]
  - HEPATIC NEOPLASM [None]
